FAERS Safety Report 8344955 (Version 2)
Quarter: 2014Q1

REPORT INFORMATION
  Report Type: Spontaneous
  Country: US (occurrence: US)
  Receive Date: 20120120
  Receipt Date: 20140203
  Transmission Date: 20141002
  Serious: Yes (Other)
  Sender: FDA-Public Use
  Company Number: US-JNJFOC-20120105053

PATIENT
  Age: 47 Year
  Sex: Female
  Weight: 92.99 kg

DRUGS (4)
  1. DURAGESIC [Suspect]
     Indication: COMPLEX REGIONAL PAIN SYNDROME
     Route: 062
     Dates: start: 1996
  2. DURAGESIC [Suspect]
     Indication: PAIN
     Route: 062
     Dates: start: 1996
  3. DURAGESIC MATRIX [Suspect]
     Indication: COMPLEX REGIONAL PAIN SYNDROME
     Route: 065
  4. DURAGESIC MATRIX [Suspect]
     Indication: PAIN
     Route: 065

REACTIONS (11)
  - Immune system disorder [Not Recovered/Not Resolved]
  - Neoplasm [Not Recovered/Not Resolved]
  - Breast enlargement [Not Recovered/Not Resolved]
  - Mammogram abnormal [Not Recovered/Not Resolved]
  - Local swelling [Not Recovered/Not Resolved]
  - Blood glucose increased [Unknown]
  - Visual acuity reduced [Not Recovered/Not Resolved]
  - Inadequate analgesia [Unknown]
  - Product packaging issue [Unknown]
  - Product quality issue [Unknown]
  - Migraine [Not Recovered/Not Resolved]
